FAERS Safety Report 5530925-5 (Version None)
Quarter: 2007Q4

REPORT INFORMATION
  Report Type: 
  Country: None (occurrence: None)
  Receive Date: 20071130
  Receipt Date: 20071120
  Transmission Date: 20080405
  Serious: Yes (Other)
  Sender: FDA-Public Use
  Company Number: US-PFIZER INC-2007068008

PATIENT
  Sex: Male
  Weight: 124.3 kg

DRUGS (21)
  1. CHANTIX [Suspect]
     Indication: SMOKING CESSATION THERAPY
     Route: 048
  2. ALLEGRA [Concomitant]
  3. ACETYLSALICYLIC ACID SRT [Concomitant]
  4. BENICAR [Concomitant]
  5. DOXYCYCLINE HYDROCHLORIDE [Concomitant]
  6. BUMETANIDE [Concomitant]
  7. IRON [Concomitant]
  8. ALL OTHER THERAPEUTIC PRODUCTS [Concomitant]
  9. ASCORBIC ACID [Concomitant]
  10. KLOR-CON [Concomitant]
  11. LABETALOL HCL [Concomitant]
  12. DILTIAZEM HYDROCHLORIDE [Concomitant]
  13. DOXAZOSIN MESYLATE [Concomitant]
  14. TRICOR [Concomitant]
  15. CRESTOR [Concomitant]
  16. IMDUR [Concomitant]
  17. VITAMIN E [Concomitant]
  18. MULTI-VITAMINS [Concomitant]
  19. K-DUR 10 [Concomitant]
  20. FOLTX [Concomitant]
  21. CARDIZEM [Concomitant]

REACTIONS (5)
  - ARTHRALGIA [None]
  - ARTHRITIS [None]
  - GOUT [None]
  - JOINT SWELLING [None]
  - OSTEOARTHRITIS [None]
